FAERS Safety Report 10572883 (Version 2)
Quarter: 2014Q4

REPORT INFORMATION
  Report Type: Spontaneous
  Country: US (occurrence: US)
  Receive Date: 20141110
  Receipt Date: 20141219
  Transmission Date: 20150529
  Serious: Yes (Death)
  Sender: FDA-Public Use
  Company Number: US-BAYER-2014-164933

PATIENT
  Age: 79 Year
  Sex: Female
  Weight: 56.69 kg

DRUGS (1)
  1. STIVARGA [Suspect]
     Active Substance: REGORAFENIB
     Indication: COLON CANCER METASTATIC
     Dosage: 80 MG (2 TABLETS), DAILY
     Route: 048
     Dates: start: 20140925, end: 20140926

REACTIONS (2)
  - Colon cancer metastatic [Fatal]
  - Abdominal pain upper [None]

NARRATIVE: CASE EVENT DATE: 20140926
